FAERS Safety Report 22634672 (Version 1)
Quarter: 2023Q2

REPORT INFORMATION
  Report Type: Spontaneous
  Country: US (occurrence: US)
  Receive Date: 20230623
  Receipt Date: 20230623
  Transmission Date: 20230721
  Serious: No
  Sender: FDA-Public Use
  Company Number: US-VERTEX PHARMACEUTICALS-2015-005270

PATIENT
  Age: 49 Year
  Sex: Male
  Weight: 71 kg

DRUGS (33)
  1. ORKAMBI [Suspect]
     Active Substance: IVACAFTOR\LUMACAFTOR
     Indication: Cystic fibrosis
     Dosage: 2 TABLETS (200MG/125MG), BID
     Route: 048
     Dates: start: 20151024
  2. ORKAMBI [Suspect]
     Active Substance: IVACAFTOR\LUMACAFTOR
     Dosage: 1 DF, BID
     Route: 048
     Dates: start: 20151210, end: 20151213
  3. ALBUTEROL [Concomitant]
     Active Substance: ALBUTEROL
  4. CEPHALEXIN [Concomitant]
     Active Substance: CEPHALEXIN
     Dosage: 500 MG, UNK
  5. CEPHALEXIN [Concomitant]
     Active Substance: CEPHALEXIN
     Dosage: 2 DF, EVERY 6 HOURS
     Route: 048
     Dates: start: 20151202, end: 20151208
  6. CIPROFLOXACIN [Concomitant]
     Active Substance: CIPROFLOXACIN
     Dosage: 750 MG, UNK
  7. CIPROFLOXACIN [Concomitant]
     Active Substance: CIPROFLOXACIN
     Dosage: 1 DF, UNK
     Route: 048
     Dates: start: 20151202, end: 20151208
  8. CLARITHROMYC [Concomitant]
     Dosage: 500 MG, UNK
     Dates: start: 20080429
  9. CLINDAMYCIN [Concomitant]
     Active Substance: CLINDAMYCIN
     Dosage: 150 MG, UNK
     Dates: start: 20081226
  10. CREON [Concomitant]
     Active Substance: PANCRELIPASE AMYLASE\PANCRELIPASE LIPASE\PANCRELIPASE PROTEASE
     Dosage: 12000 UT, UNK
     Dates: start: 20100902
  11. DESONIDE [Concomitant]
     Active Substance: DESONIDE
     Dosage: 0.05 %, UNK
     Dates: start: 20070413
  12. HUMALOG [Concomitant]
     Active Substance: INSULIN LISPRO
     Dosage: 100 ML, UNK
  13. INSULIN NOS [Concomitant]
     Active Substance: INSULIN NOS
     Dosage: UNK
     Dates: start: 20060726
  14. HYDROCODONE BITARTRATE AND ACETAMINOPHEN [Concomitant]
     Active Substance: ACETAMINOPHEN\HYDROCODONE BITARTRATE
     Dosage: UNK
     Dates: start: 20080910
  15. LANTUS [Concomitant]
     Active Substance: INSULIN GLARGINE
     Dosage: 100 ML, UNK
  16. LEVAQUIN [Concomitant]
     Active Substance: LEVOFLOXACIN
     Dosage: 500 MG, UNK
     Dates: start: 20070203
  17. METHYLPREDNISOLONE [Concomitant]
     Active Substance: METHYLPREDNISOLONE
     Dosage: 4 MG, UNK
     Dates: start: 20070203
  18. METOCLOPRAMIDE [Concomitant]
     Active Substance: METOCLOPRAMIDE
     Dosage: 10 MG, UNK
     Dates: start: 20081102
  19. OXYCODONE [Concomitant]
     Active Substance: OXYCODONE
     Dosage: 5 MG, UNK
     Dates: start: 20080901
  20. PREDNISONE [Concomitant]
     Active Substance: PREDNISONE
     Indication: Bronchial oedema
     Dosage: 5 MG, UNK
     Dates: start: 20060429
  21. PREDNISONE [Concomitant]
     Active Substance: PREDNISONE
     Dosage: 10 UNK, UNK
  22. PREDNISONE [Concomitant]
     Active Substance: PREDNISONE
     Dosage: UNK
     Dates: start: 20151202
  23. PROAIR HFA [Concomitant]
     Active Substance: ALBUTEROL SULFATE
  24. RESTASIS [Concomitant]
     Active Substance: CYCLOSPORINE
     Dosage: UNK
     Dates: start: 20070704
  25. ULTRAM ER [Concomitant]
     Active Substance: TRAMADOL HYDROCHLORIDE
     Dosage: 200 MG, UNK
     Dates: start: 20070726
  26. URSODIOL [Concomitant]
     Active Substance: URSODIOL
     Dosage: 300 MG, UNK
  27. VENTOLIN HFA [Concomitant]
     Active Substance: ALBUTEROL SULFATE
  28. PULMOZYME [Concomitant]
     Active Substance: DORNASE ALFA
  29. SODIUM CHLORIDE [Concomitant]
     Active Substance: SODIUM CHLORIDE
     Dosage: 7 %
  30. COLISTIN [Concomitant]
     Active Substance: COLISTIN
  31. CAYSTON [Concomitant]
     Active Substance: AZTREONAM
  32. AZITHROMYCIN [Concomitant]
     Active Substance: AZITHROMYCIN
  33. PENICILLIN [Concomitant]
     Active Substance: PENICILLIN

REACTIONS (7)
  - Bronchial secretion retention [Unknown]
  - Pulmonary function test decreased [Unknown]
  - Decreased appetite [Not Recovered/Not Resolved]
  - Weight decreased [Not Recovered/Not Resolved]
  - Oxygen saturation decreased [Unknown]
  - Dyspnoea [Recovering/Resolving]
  - Respiration abnormal [Recovering/Resolving]

NARRATIVE: CASE EVENT DATE: 20151031
